FAERS Safety Report 18800532 (Version 1)
Quarter: 2021Q1

REPORT INFORMATION
  Report Type: Spontaneous
  Country: US (occurrence: US)
  Receive Date: 20210128
  Receipt Date: 20210128
  Transmission Date: 20210419
  Serious: No
  Sender: FDA-Public Use
  Company Number: US-ABBVIE-20K-163-3412325-00

PATIENT
  Age: 74 Year
  Sex: Male

DRUGS (1)
  1. LUPRON DEPOT [Suspect]
     Active Substance: LEUPROLIDE ACETATE
     Indication: PROSTATE CANCER
     Route: 030
     Dates: start: 20191217

REACTIONS (12)
  - Headache [Not Recovered/Not Resolved]
  - Feeling hot [Unknown]
  - Pain in extremity [Not Recovered/Not Resolved]
  - Hot flush [Not Recovered/Not Resolved]
  - Back pain [Not Recovered/Not Resolved]
  - Palpitations [Unknown]
  - Insomnia [Not Recovered/Not Resolved]
  - Petechiae [Unknown]
  - Dry mouth [Unknown]
  - Abdominal discomfort [Not Recovered/Not Resolved]
  - Arthralgia [Not Recovered/Not Resolved]
  - Feeling cold [Unknown]

NARRATIVE: CASE EVENT DATE: 20200504
